FAERS Safety Report 5300187-2 (Version None)
Quarter: 2007Q2

REPORT INFORMATION
  Report Type: 
  Country: None (occurrence: None)
  Receive Date: 20070411
  Receipt Date: 20070327
  Transmission Date: 20071010
  Serious: Yes (Other)
  Sender: FDA-Public Use
  Company Number: 011360

PATIENT
  Sex: Female
  Weight: 65.3 kg

DRUGS (4)
  1. WARFARIN SODIUM [Suspect]
     Indication: DEEP VEIN THROMBOSIS
     Dosage: SEE IMAGE
     Route: 048
     Dates: start: 20061130, end: 20070128
  2. WARFARIN SODIUM [Suspect]
     Indication: DEEP VEIN THROMBOSIS
     Dosage: SEE IMAGE
     Route: 048
     Dates: start: 20070129
  3. GINKOBIL (GINKGO BILOBA EXTRACT) [Concomitant]
  4. VITAMIN E [Concomitant]

REACTIONS (11)
  - ANAEMIA [None]
  - ASTHENIA [None]
  - BALANCE DISORDER [None]
  - BLOOD URINE PRESENT [None]
  - COITAL BLEEDING [None]
  - DIZZINESS [None]
  - INTERNATIONAL NORMALISED RATIO DECREASED [None]
  - MENTAL IMPAIRMENT [None]
  - NEOPLASM [None]
  - OEDEMA PERIPHERAL [None]
  - PROTHROMBIN TIME PROLONGED [None]
